FAERS Safety Report 4381770-8 (Version None)
Quarter: 2004Q2

REPORT INFORMATION
  Report Type: 
  Country: None (occurrence: None)
  Receive Date: 20040614
  Receipt Date: 20030916
  Transmission Date: 20050107
  Serious: Yes (Other)
  Sender: FDA-Public Use
  Company Number: 2003172834US

PATIENT
  Age: 56 Year
  Sex: Female
  Weight: 113.4 kg

DRUGS (3)
  1. ZYVOX [Suspect]
     Indication: STAPHYLOCOCCAL INFECTION
     Dosage: 600 MG, BID, ORAL
     Route: 048
     Dates: start: 20030701, end: 20030813
  2. DILTIAZEM HYDROCHLORIDE [Concomitant]
  3. RIFAMPICIN [Concomitant]

REACTIONS (1)
  - THROMBOCYTOPENIA [None]
